FAERS Safety Report 21140892 (Version 1)
Quarter: 2022Q3

REPORT INFORMATION
  Report Type: Spontaneous
  Country: CA (occurrence: None)
  Receive Date: 20220728
  Receipt Date: 20220728
  Transmission Date: 20221027
  Serious: Yes (Other)
  Sender: FDA-Public Use
  Company Number: CA-ROCHE-3145238

PATIENT
  Age: 26 Year
  Sex: Female

DRUGS (9)
  1. RITUXIMAB [Suspect]
     Active Substance: RITUXIMAB
     Indication: Focal segmental glomerulosclerosis
     Route: 041
  2. PREDNISONE [Concomitant]
     Active Substance: PREDNISONE
  3. INSULIN NOS [Concomitant]
     Active Substance: INSULIN NOS
  4. ACETAMINOPHEN [Concomitant]
     Active Substance: ACETAMINOPHEN
     Route: 048
  5. DIPHENHYDRAMINE HYDROCHLORIDE [Concomitant]
     Active Substance: DIPHENHYDRAMINE HYDROCHLORIDE
  6. METHYLPREDNISOLONE [Concomitant]
     Active Substance: METHYLPREDNISOLONE
     Route: 042
  7. TACROLIMUS [Concomitant]
     Active Substance: TACROLIMUS
  8. PERINDOPRIL [Concomitant]
     Active Substance: PERINDOPRIL
  9. ROSUVASTATIN [Concomitant]
     Active Substance: ROSUVASTATIN

REACTIONS (7)
  - Respiratory tract infection [Recovered/Resolved]
  - Feeling hot [Recovered/Resolved]
  - Pharyngeal paraesthesia [Recovered/Resolved]
  - Rhinorrhoea [Recovered/Resolved]
  - Cough [Recovered/Resolved]
  - Off label use [Unknown]
  - Ear disorder [Recovered/Resolved]
